FAERS Safety Report 8687542 (Version 3)
Quarter: 2012Q4

REPORT INFORMATION
  Report Type: 
  Country: DE (occurrence: DE)
  Receive Date: 20120727
  Receipt Date: 20121226
  Transmission Date: 20130627
  Serious: Yes (Life-Threatening)
  Sender: FDA-Public Use
  Company Number: DE-FRI-1000037366

PATIENT
  Age: 72 Year
  Sex: Male
  Weight: 83 kg

DRUGS (12)
  1. ROFLUMILAST [Suspect]
     Indication: CHRONIC OBSTRUCTIVE PULMONARY DISEASE
     Dosage: 500 mcg
     Route: 048
     Dates: start: 20111115
  2. DIGIMERCK [Concomitant]
     Dosage: 0.07 mg
  3. VERAPAMIL [Concomitant]
  4. BERLINSULIN [Concomitant]
  5. LIPROLOG [Concomitant]
  6. SPIRIVA [Concomitant]
  7. ATMADISC [Concomitant]
  8. OMEP [Concomitant]
     Dosage: 20 mg
  9. ASS [Concomitant]
     Dosage: 100 mg
  10. RAMILICH [Concomitant]
     Dosage: 2.5 DF
  11. CIPROFLOXACIN [Concomitant]
     Dosage: 1000 mg
  12. DAXAN [Concomitant]

REACTIONS (4)
  - Abdominal pain [Recovering/Resolving]
  - Mechanical ileus [None]
  - Renal cyst [None]
  - Urinary retention [None]
